FAERS Safety Report 9947550 (Version 1)
Quarter: 2014Q1

REPORT INFORMATION
  Report Type: Report from Study
  Country: US (occurrence: US)
  Receive Date: 20140303
  Receipt Date: 20140303
  Transmission Date: 20141002
  Serious: No
  Sender: FDA-Public Use
  Company Number: US-ABBVIE-13P-163-1064961-00

PATIENT
  Age: 61 Year
  Sex: Female
  Weight: 70.82 kg

DRUGS (7)
  1. HUMIRA [Suspect]
     Indication: RHEUMATOID ARTHRITIS
     Dates: start: 20130301, end: 20130301
  2. HUMIRA [Suspect]
     Indication: CROHN^S DISEASE
  3. LEVOTHYROXINE [Concomitant]
     Indication: THYROID DISORDER
  4. PENTASA [Concomitant]
     Indication: CROHN^S DISEASE
  5. ARAVA [Concomitant]
     Indication: RHEUMATOID ARTHRITIS
  6. ACID REDUCER [Concomitant]
     Indication: GASTROOESOPHAGEAL REFLUX DISEASE
  7. CELEBREX [Concomitant]
     Indication: RHEUMATOID ARTHRITIS

REACTIONS (1)
  - Headache [Recovering/Resolving]
